FAERS Safety Report 6913713-4 (Version None)
Quarter: 2010Q3

REPORT INFORMATION
  Report Type: 
  Country: None (occurrence: None)
  Receive Date: 20100806
  Receipt Date: 20100806
  Transmission Date: 20110219
  Serious: Yes (Other)
  Sender: FDA-Public Use
  Company Number: None

PATIENT
  Age: 51 Year
  Sex: Male
  Weight: 83.9154 kg

DRUGS (2)
  1. GEODON [Suspect]
     Indication: BIPOLAR DISORDER
     Dosage: 2/DAY ORAL
     Route: 048
  2. GEODON [Suspect]
     Indication: BIPOLAR I DISORDER
     Dosage: 2/DAY ORAL
     Route: 048

REACTIONS (4)
  - DIZZINESS [None]
  - FALL [None]
  - PERIORBITAL HAEMATOMA [None]
  - RASH [None]
